FAERS Safety Report 10555068 (Version 1)
Quarter: 2014Q4

REPORT INFORMATION
  Report Type: Spontaneous
  Country: US (occurrence: None)
  Receive Date: 20141029
  Receipt Date: 20141029
  Transmission Date: 20150529
  Serious: Yes (Hospitalization, Disabling, Other)
  Sender: FDA-Public Use
  Company Number: None

PATIENT
  Age: 43 Year
  Sex: Female
  Weight: 151.5 kg

DRUGS (2)
  1. VANCOMYCIN (VANCOMYCIN) [Suspect]
     Active Substance: VANCOMYCIN
     Indication: STAPHYLOCOCCAL INFECTION
     Dates: start: 20141014, end: 20141018
  2. VANCOMYCIN (VANCOMYCIN) [Suspect]
     Active Substance: VANCOMYCIN
     Indication: ABSCESS
     Dates: start: 20141014, end: 20141018

REACTIONS (6)
  - Malaise [None]
  - Renal failure [None]
  - Glycosylated haemoglobin increased [None]
  - Blood creatinine increased [None]
  - Renal disorder [None]
  - Palpitations [None]

NARRATIVE: CASE EVENT DATE: 20141014
